FAERS Safety Report 11265381 (Version 1)
Quarter: 2015Q3

REPORT INFORMATION
  Report Type: Spontaneous
  Country: US (occurrence: None)
  Receive Date: 20150710
  Receipt Date: 20150710
  Transmission Date: 20151125
  Serious: Yes (Hospitalization)
  Sender: FDA-Public Use
  Company Number: None

PATIENT
  Age: 69 Year
  Sex: Female
  Weight: 76.9 kg

DRUGS (4)
  1. LORAZEPAM. [Concomitant]
     Active Substance: LORAZEPAM
  2. LINEZOLID 600 MG [Suspect]
     Active Substance: LINEZOLID
     Indication: PNEUMONIA
     Dosage: 600
     Route: 048
  3. BUPROPION. [Concomitant]
     Active Substance: BUPROPION
  4. CEFEPIME [Concomitant]
     Active Substance: CEFEPIME HYDROCHLORIDE

REACTIONS (2)
  - Agitation [None]
  - Delirium [None]

NARRATIVE: CASE EVENT DATE: 20150622
